FAERS Safety Report 20541408 (Version 1)
Quarter: 2022Q1

REPORT INFORMATION
  Report Type: Spontaneous
  Country: FR (occurrence: FR)
  Receive Date: 20220302
  Receipt Date: 20220302
  Transmission Date: 20220424
  Serious: Yes (Other)
  Sender: FDA-Public Use
  Company Number: FR-BAYER-2021A218794

PATIENT
  Age: 73 Year
  Sex: Female

DRUGS (4)
  1. XARELTO [Suspect]
     Active Substance: RIVAROXABAN
     Indication: Arrhythmia
     Dosage: 20 MG, QD
     Route: 048
  2. FLECAINIDE [Concomitant]
     Active Substance: FLECAINIDE
  3. LEVOTHYROXINE [Concomitant]
     Active Substance: LEVOTHYROXINE
  4. ESOMEPRAZOLE [Concomitant]
     Active Substance: ESOMEPRAZOLE

REACTIONS (7)
  - Oesophageal disorder [Unknown]
  - Capillary disorder [Unknown]
  - Joint swelling [Unknown]
  - Pruritus [Unknown]
  - Dental caries [Unknown]
  - Headache [Unknown]
  - Dizziness [Unknown]
